FAERS Safety Report 22624159 (Version 3)
Quarter: 2023Q2

REPORT INFORMATION
  Report Type: Spontaneous
  Country: US (occurrence: US)
  Receive Date: 20230621
  Receipt Date: 20230630
  Transmission Date: 20230722
  Serious: No
  Sender: FDA-Public Use
  Company Number: US-PFIZER INC-202300225234

PATIENT
  Age: 10 Year
  Sex: Male

DRUGS (1)
  1. GENOTROPIN [Suspect]
     Active Substance: SOMATROPIN
     Dosage: 1 MG, DAILY
     Dates: start: 202306

REACTIONS (6)
  - Product dose omission issue [Unknown]
  - Poor quality device used [Unknown]
  - Device mechanical issue [Unknown]
  - Device leakage [Unknown]
  - Device issue [Unknown]
  - Device breakage [Unknown]
